FAERS Safety Report 8465556-0 (Version None)
Quarter: 2012Q2

REPORT INFORMATION
  Report Type: 
  Country: None (occurrence: None)
  Receive Date: 20120626
  Receipt Date: 20120611
  Transmission Date: 20120825
  Serious: No
  Sender: FDA-Public Use
  Company Number: US-ASTRAZENECA-2012SE39135

PATIENT
  Age: 60 Year
  Sex: Male

DRUGS (4)
  1. PRILOSEC OTC [Suspect]
     Route: 048
  2. PRILOSEC [Suspect]
     Route: 048
  3. NEXIUM [Concomitant]
  4. PREVACID [Concomitant]

REACTIONS (3)
  - DRUG INEFFECTIVE [None]
  - BURN OESOPHAGEAL [None]
  - ODYNOPHAGIA [None]
